FAERS Safety Report 10170398 (Version 1)
Quarter: 2014Q2

REPORT INFORMATION
  Report Type: Spontaneous
  Country: US (occurrence: US)
  Receive Date: 20140513
  Receipt Date: 20140513
  Transmission Date: 20141212
  Serious: No
  Sender: FDA-Public Use
  Company Number: US-UPSHER-SMITH LABORATORIES, INC.-13003359

PATIENT
  Sex: Male

DRUGS (9)
  1. KLOR-CON TABLETS [Suspect]
     Indication: HYPOKALAEMIA
     Dosage: 30 MEQ, BID
     Route: 048
     Dates: start: 2003, end: 201309
  2. AMLODIPINE [Concomitant]
     Dosage: UNK
  3. LIPITOR [Concomitant]
     Dosage: UNK
  4. LEVOXYL [Concomitant]
     Dosage: UNK
  5. CLONIDINE [Concomitant]
     Dosage: UNK
  6. FLONASE [Concomitant]
     Dosage: UNK
  7. CIALIS [Concomitant]
     Dosage: UNK
  8. INSPRA                             /01362602/ [Concomitant]
     Dosage: UNK
  9. VITAMINS NOS [Concomitant]
     Dosage: UNK

REACTIONS (2)
  - Blood potassium decreased [Unknown]
  - Medication residue present [Recovered/Resolved]
